FAERS Safety Report 4296065-0 (Version None)
Quarter: 2004Q1

REPORT INFORMATION
  Report Type: 
  Country: None (occurrence: None)
  Receive Date: 20040212
  Receipt Date: 20040212
  Transmission Date: 20041129
  Serious: Yes (Hospitalization)
  Sender: FDA-Public Use
  Company Number: 2003IM001273

PATIENT
  Age: 62 Year
  Sex: Female
  Weight: 105 kg

DRUGS (13)
  1. INTERFERON GAMMA-1B (INTERFERON GAMMA-1B) [Suspect]
     Indication: OVARIAN CANCER
     Dosage: 100 UG; TIW; SUBCUTANEOUS
     Route: 058
     Dates: start: 20031009, end: 20031129
  2. CARBOPLATIN [Suspect]
     Indication: OVARIAN CANCER
     Dosage: 600 MG; Q3W;  INTRAVENOUS
     Route: 042
     Dates: start: 20031009, end: 20031120
  3. PACLITAXEL [Suspect]
     Indication: OVARIAN CANCER
     Dosage: 380 MG; Q3W; INTRAVENOUS
     Route: 042
     Dates: start: 20031009, end: 20031120
  4. ENALAPRIL [Concomitant]
  5. TARDYFERON [Concomitant]
  6. OMEPRAZOLE [Concomitant]
  7. DEXAMETHASONE [Concomitant]
  8. CLEMASTINE [Concomitant]
  9. CIMETIDINE HCL [Concomitant]
  10. ZOFRAN [Concomitant]
  11. HYDROCORTISONE [Concomitant]
  12. PYRALGINUM [Concomitant]
  13. PAPAVERETUM [Concomitant]

REACTIONS (7)
  - ARTERIAL DISORDER [None]
  - BALANCE DISORDER [None]
  - BLOOD PRESSURE INCREASED [None]
  - DISORIENTATION [None]
  - DYSGRAPHIA [None]
  - SPINAL DEFORMITY [None]
  - VERTIGO [None]
